FAERS Safety Report 14602215 (Version 1)
Quarter: 2018Q1

REPORT INFORMATION
  Report Type: Spontaneous
  Country: DK (occurrence: DK)
  Receive Date: 20180306
  Receipt Date: 20180306
  Transmission Date: 20180509
  Serious: Yes (Hospitalization, Other)
  Sender: FDA-Public Use
  Company Number: DK-CIPLA LTD.-2018DK08408

PATIENT

DRUGS (8)
  1. OXYCODONE [Concomitant]
     Active Substance: OXYCODONE
     Indication: PAIN
     Dosage: 5 MG, STYRKE: 5 MG.DOSIS: 1 TABL. VED BEHOV MAX 6XDAGLIGT. ; AS NECESSARY
     Route: 048
     Dates: start: 20170427
  2. VAGIFEM [Concomitant]
     Active Substance: ESTRADIOL
     Indication: HORMONE THERAPY
     Dosage: 10 ?G, STYRKE: 10 MIKROGRAM.DOSIS: 1 VAGINALTABLET DAGLIGT DAG 1-4 OG HEREFTER PAUSE I 3 DAGE.
     Route: 067
     Dates: start: 20170922
  3. LORAZEPAM. [Concomitant]
     Active Substance: LORAZEPAM
     Indication: INSOMNIA
     Dosage: 1 MG, STYRKE: 1 MG
     Route: 048
     Dates: start: 20171026
  4. GEMCITABINE [Suspect]
     Active Substance: GEMCITABINE\GEMCITABINE HYDROCHLORIDE
     Dosage: STYRKE: 1 G.
     Route: 042
     Dates: start: 20170803, end: 20171221
  5. IMOLOPE [Concomitant]
     Indication: DIARRHOEA
     Dosage: 2 MG, UNK
     Route: 048
     Dates: start: 20170704
  6. PANTOPRAZOL ACTAVIS [Concomitant]
     Active Substance: PANTOPRAZOLE SODIUM
     Indication: GASTROOESOPHAGEAL REFLUX DISEASE
     Dosage: 80 MG, STYRKE: 40 MG.
     Route: 048
     Dates: start: 20170125
  7. PAMOL [Concomitant]
     Active Substance: ACETAMINOPHEN
     Indication: PAIN
     Dosage: 4000 MG, UNK
     Route: 048
     Dates: start: 20170406
  8. KREON [Concomitant]
     Active Substance: PANCRELIPASE
     Indication: ENZYME SUPPLEMENTATION
     Dosage: 3 DF, PER DAY
     Route: 048
     Dates: start: 20170623

REACTIONS (4)
  - Dehydration [Unknown]
  - Renal failure [Not Recovered/Not Resolved]
  - Anaemia [Unknown]
  - Blood creatinine increased [Recovering/Resolving]

NARRATIVE: CASE EVENT DATE: 20180101
